FAERS Safety Report 7946193-0 (Version None)
Quarter: 2011Q4

REPORT INFORMATION
  Report Type: 
  Country: None (occurrence: None)
  Receive Date: 20111129
  Receipt Date: 20111122
  Transmission Date: 20120403
  Serious: Yes (Other)
  Sender: FDA-Public Use
  Company Number: US-TEVA-310255USA

PATIENT
  Sex: Female
  Weight: 61.29 kg

DRUGS (3)
  1. VENLAFAXINE [Suspect]
     Indication: HOT FLUSH
     Dosage: 150 MILLIGRAM; DAILY
     Dates: start: 20110601, end: 20110701
  2. VENLAFAXINE [Suspect]
     Indication: INSOMNIA
  3. LEVOTHYROXINE SODIUM [Concomitant]
     Indication: THYROID DISORDER
     Dosage: 50 MICROGRAM;

REACTIONS (4)
  - FEELING ABNORMAL [None]
  - MENTAL DISORDER [None]
  - MALAISE [None]
  - DRUG INEFFECTIVE [None]
